FAERS Safety Report 26201014 (Version 1)
Quarter: 2025Q4

REPORT INFORMATION
  Report Type: Spontaneous
  Country: US (occurrence: US)
  Receive Date: 20251226
  Receipt Date: 20251226
  Transmission Date: 20260117
  Serious: No
  Sender: DECIPHERA PHARMACEUTICALS
  Company Number: US-DECIPHERA PHARMACEUTICALS LLC-2025US001515

PATIENT
  Sex: Male

DRUGS (1)
  1. QINLOCK [Suspect]
     Active Substance: RIPRETINIB
     Indication: Neoplasm malignant
     Dosage: 150 MILLIGRAM, QD
     Dates: start: 2024

REACTIONS (5)
  - Peripheral coldness [Unknown]
  - Blood thyroid stimulating hormone increased [Unknown]
  - Trichorrhexis [Not Recovered/Not Resolved]
  - Alopecia [Recovering/Resolving]
  - Product use in unapproved indication [Unknown]
